FAERS Safety Report 23242247 (Version 1)
Quarter: 2023Q4

REPORT INFORMATION
  Report Type: Spontaneous
  Country: IT (occurrence: IT)
  Receive Date: 20231129
  Receipt Date: 20231129
  Transmission Date: 20240110
  Serious: Yes (Other)
  Sender: FDA-Public Use
  Company Number: IT-BRISTOL-MYERS SQUIBB COMPANY-2023-160016

PATIENT
  Age: 60 Year
  Sex: Male

DRUGS (3)
  1. APIXABAN [Suspect]
     Active Substance: APIXABAN
     Indication: Product used for unknown indication
     Dosage: 5 MILLIGRAM, BID (DOSE : 5MG; FREQ : TWICE DAILY)
     Route: 048
  2. TAMSULOSIN HYDROCHLORIDE [Concomitant]
     Active Substance: TAMSULOSIN HYDROCHLORIDE
     Indication: Product used for unknown indication
     Dosage: QD (1 TAB/ DAY)
     Route: 065
  3. FOSTER [Concomitant]
     Active Substance: BECLOMETHASONE\FORMOTEROL
     Indication: Product used for unknown indication
     Dosage: 100
     Route: 065

REACTIONS (5)
  - Thrombosis [Recovered/Resolved]
  - Drug ineffective [Recovered/Resolved]
  - Oligoarthritis [Unknown]
  - Asthenia [Recovered/Resolved]
  - Hypercoagulation [Recovered/Resolved]
